FAERS Safety Report 21473489 (Version 1)
Quarter: 2022Q4

REPORT INFORMATION
  Report Type: Report from Study
  Country: US (occurrence: US)
  Receive Date: 20221018
  Receipt Date: 20221018
  Transmission Date: 20230113
  Serious: Yes (Other)
  Sender: FDA-Public Use
  Company Number: US-TAKEDA-2022TUS073688

PATIENT
  Age: 46 Year
  Sex: Female

DRUGS (1)
  1. LISDEXAMFETAMINE DIMESYLATE [Suspect]
     Active Substance: LISDEXAMFETAMINE DIMESYLATE
     Indication: Product used for unknown indication
     Dosage: 70 MILLIGRAM
     Route: 065

REACTIONS (9)
  - Bradycardia [Unknown]
  - Heart rate irregular [Unknown]
  - Myalgia [Unknown]
  - Therapy interrupted [Unknown]
  - Tachycardia [Unknown]
  - Hyperhidrosis [Unknown]
  - Fatigue [Unknown]
  - Somnolence [Unknown]
  - Product availability issue [Unknown]

NARRATIVE: CASE EVENT DATE: 20220930
